FAERS Safety Report 26016375 (Version 1)
Quarter: 2025Q4

REPORT INFORMATION
  Report Type: Spontaneous
  Country: EU (occurrence: None)
  Receive Date: 20251110
  Receipt Date: 20251110
  Transmission Date: 20260118
  Serious: Yes (Other)
  Sender: UCB
  Company Number: None

PATIENT
  Age: 34 Year
  Weight: 70 kg

DRUGS (5)
  1. BRIVARACETAM [Suspect]
     Active Substance: BRIVARACETAM
     Indication: Wrong patient received product
     Dosage: 100 MILLIGRAM, ONCE DAILY (QD)
  2. DIVALPROEX SODIUM [Suspect]
     Active Substance: DIVALPROEX SODIUM
     Indication: Wrong patient received product
     Dosage: 1000 MILLIGRAM, ONCE DAILY (QD)
  3. CLOZAPINE [Suspect]
     Active Substance: CLOZAPINE
     Indication: Wrong patient received product
     Dosage: 100 MILLIGRAM, ONCE DAILY (QD)
  4. LORAZEPAM [Suspect]
     Active Substance: LORAZEPAM
     Indication: Wrong patient received product
     Dosage: 1 MILLIGRAM, ONCE DAILY (QD)
  5. LEVOMEPROMAZINE [Suspect]
     Active Substance: LEVOMEPROMAZINE
     Indication: Wrong patient received product
     Dosage: 100 MILLIGRAM, ONCE DAILY (QD)

REACTIONS (5)
  - Hypoxia [Recovered/Resolved]
  - Somnolence [Recovered/Resolved]
  - Tachycardia [Recovered/Resolved]
  - Malaise [Recovered/Resolved]
  - Wrong patient received product [Unknown]
